FAERS Safety Report 20181350 (Version 2)
Quarter: 2022Q1

REPORT INFORMATION
  Report Type: Spontaneous
  Country: US (occurrence: US)
  Receive Date: 20211214
  Receipt Date: 20220123
  Transmission Date: 20220423
  Serious: No
  Sender: FDA-Public Use
  Company Number: US-Blueprint Medicines Corporation-SP-US-2021-002391

PATIENT
  Age: 37 Year
  Sex: Male

DRUGS (1)
  1. AYVAKIT [Suspect]
     Active Substance: AVAPRITINIB
     Indication: Gastrointestinal stromal tumour
     Route: 048
     Dates: start: 20210701

REACTIONS (5)
  - Hair colour changes [Unknown]
  - Decreased appetite [Unknown]
  - Nausea [Unknown]
  - Product dose omission issue [Unknown]
  - Laboratory test abnormal [Unknown]
